FAERS Safety Report 8795536 (Version 1)
Quarter: 2012Q4

REPORT INFORMATION
  Report Type: 
  Country: GB (occurrence: GB)
  Receive Date: 20120917
  Receipt Date: 20120917
  Transmission Date: 20130627
  Serious: Yes (Hospitalization, Disabling, Other)
  Sender: FDA-Public Use
  Company Number: GB-EISAI INC-E2090-02305-SPO-GB

PATIENT
  Age: 48 Year
  Sex: Female

DRUGS (4)
  1. ZONEGRAN [Suspect]
     Indication: SEIZURE
     Route: 048
     Dates: start: 20120801, end: 20120816
  2. GABAPENTIN [Concomitant]
     Route: 048
  3. KEPPRA [Concomitant]
     Route: 048
  4. PHENYTOIN [Concomitant]
     Route: 048

REACTIONS (3)
  - Mobility decreased [Recovered/Resolved]
  - Anticonvulsant drug level increased [Recovered/Resolved]
  - Agitation [Recovered/Resolved]
